FAERS Safety Report 5998544-4 (Version None)
Quarter: 2008Q4

REPORT INFORMATION
  Report Type: 
  Country: None (occurrence: None)
  Receive Date: 20081213
  Receipt Date: 20080711
  Transmission Date: 20090506
  Serious: No
  Sender: FDA-Public Use
  Company Number: US-AMGEN-KDL293524

PATIENT
  Sex: Female
  Weight: 73.5 kg

DRUGS (8)
  1. ENBREL [Suspect]
     Indication: RHEUMATOID ARTHRITIS
     Route: 058
     Dates: start: 20071022
  2. BONIVA [Suspect]
     Route: 048
     Dates: start: 20080519
  3. METHOTREXATE [Concomitant]
     Route: 048
     Dates: start: 20080424
  4. PREDNISONE TAB [Concomitant]
     Dates: start: 20080527
  5. CALTRATE 600 [Concomitant]
     Route: 048
     Dates: start: 20071022
  6. FOLIC ACID [Concomitant]
     Route: 048
     Dates: start: 20080424
  7. TYLENOL (CAPLET) [Concomitant]
     Route: 048
     Dates: start: 20071022
  8. PRILOSEC [Concomitant]
     Dates: start: 20071022

REACTIONS (6)
  - ARTHRALGIA [None]
  - DIZZINESS [None]
  - INJECTION SITE HAEMATOMA [None]
  - INJECTION SITE HAEMORRHAGE [None]
  - INJECTION SITE PAIN [None]
  - MEMORY IMPAIRMENT [None]
